FAERS Safety Report 25628661 (Version 2)
Quarter: 2025Q4

REPORT INFORMATION
  Report Type: Spontaneous
  Country: US (occurrence: US)
  Receive Date: 20250731
  Receipt Date: 20251105
  Transmission Date: 20260117
  Serious: No
  Sender: Tarsus Pharmaceuticals
  Company Number: US-TARSUS PHARMACEUTICALS-TSP-US-2025-000497

PATIENT

DRUGS (1)
  1. XDEMVY [Suspect]
     Active Substance: LOTILANER
     Indication: Arthropod infestation
     Dosage: UNK
     Route: 047
     Dates: start: 20250520, end: 20250527

REACTIONS (6)
  - Dry eye [Unknown]
  - Photophobia [Unknown]
  - Wrong technique in product usage process [Unknown]
  - Suspected product contamination [Unknown]
  - Therapy interrupted [Unknown]
  - Illness [Unknown]

NARRATIVE: CASE EVENT DATE: 20250501
